FAERS Safety Report 21624771 (Version 9)
Quarter: 2023Q2

REPORT INFORMATION
  Report Type: Report from Study
  Country: CN (occurrence: CN)
  Receive Date: 20221122
  Receipt Date: 20230530
  Transmission Date: 20230721
  Serious: Yes (Death, Hospitalization, Other)
  Sender: FDA-Public Use
  Company Number: CN-002147023-NVSC2022CN260105

PATIENT
  Age: 53 Year
  Sex: Female
  Weight: 64 kg

DRUGS (7)
  1. MEKINIST [Suspect]
     Active Substance: TRAMETINIB DIMETHYL SULFOXIDE
     Indication: Papillary thyroid cancer
     Dosage: 2 MG, QD
     Route: 048
     Dates: start: 20220818, end: 20221101
  2. MEKINIST [Suspect]
     Active Substance: TRAMETINIB DIMETHYL SULFOXIDE
     Dosage: 2 MG, QD
     Route: 048
     Dates: start: 20221111, end: 20221120
  3. LEVOTHYROXINE SODIUM [Concomitant]
     Active Substance: LEVOTHYROXINE SODIUM
     Indication: Postoperative care
     Dosage: 87.5 UG, QD
     Route: 048
     Dates: start: 202206
  4. CALAMINE [Concomitant]
     Active Substance: CALAMINE\FERRIC OXIDE RED\ZINC OXIDE
     Indication: Rash
     Dosage: UNK, TID (UNIT: G) (FORMULATION: LOTION)
     Route: 003
     Dates: start: 20221010
  5. UREA [Concomitant]
     Active Substance: UREA
     Indication: Rash
     Dosage: UNK, QD  (UNIT: G)
     Route: 003
     Dates: start: 20221017
  6. VITAMIN B1 [Concomitant]
     Active Substance: THIAMINE HYDROCHLORIDE
     Indication: Stomatitis
     Dosage: 1 DOSAGE FORM, TID
     Route: 048
     Dates: start: 20220927, end: 20221103
  7. VITAMIN E [Concomitant]
     Active Substance: .ALPHA.-TOCOPHEROL
     Indication: Rash
     Dosage: UNK, QD  (UNIT: G)
     Route: 003
     Dates: start: 20221017

REACTIONS (23)
  - Pneumonia [Fatal]
  - Diarrhoea [Recovered/Resolved]
  - Haematochezia [Recovered/Resolved]
  - Anal ulcer [Recovered/Resolved]
  - Fatigue [Unknown]
  - Asthenia [Not Recovered/Not Resolved]
  - Lower gastrointestinal haemorrhage [Unknown]
  - Metastasis [Unknown]
  - Pericardial effusion [Unknown]
  - Cholecystitis [Unknown]
  - Discomfort [Unknown]
  - Pleural effusion [Unknown]
  - Thyroid mass [Unknown]
  - Peritoneal disorder [Unknown]
  - Retroperitoneal lymphadenopathy [Unknown]
  - Pelvic fluid collection [Unknown]
  - Lymphadenopathy [Unknown]
  - Pulmonary mass [Unknown]
  - Alanine aminotransferase increased [Unknown]
  - Aspartate aminotransferase increased [Unknown]
  - Hypersensitivity [Unknown]
  - Productive cough [Unknown]
  - Product use in unapproved indication [Unknown]

NARRATIVE: CASE EVENT DATE: 20220818
